FAERS Safety Report 10214513 (Version 1)
Quarter: 2014Q2

REPORT INFORMATION
  Report Type: Spontaneous
  Country: US (occurrence: None)
  Receive Date: 20140602
  Receipt Date: 20140602
  Transmission Date: 20141212
  Serious: Yes (Hospitalization)
  Sender: FDA-Public Use
  Company Number: None

PATIENT
  Age: 54 Year
  Sex: Male
  Weight: 87.9 kg

DRUGS (1)
  1. BUPROPION [Suspect]
     Indication: DEPRESSION
     Route: 048
     Dates: start: 20130202, end: 20140211

REACTIONS (7)
  - Confusional state [None]
  - Akathisia [None]
  - Delirium [None]
  - Hyponatraemia [None]
  - Schizophrenia [None]
  - Blood creatine phosphokinase increased [None]
  - Restlessness [None]
